FAERS Safety Report 19623999 (Version 1)
Quarter: 2021Q3

REPORT INFORMATION
  Report Type: Spontaneous
  Country: IN (occurrence: IN)
  Receive Date: 20210729
  Receipt Date: 20210729
  Transmission Date: 20211014
  Serious: Yes (Other)
  Sender: FDA-Public Use
  Company Number: IN-SCIEGENPHARMA-2021SCILIT00626

PATIENT
  Age: 75 Year
  Sex: Female

DRUGS (4)
  1. OLMESARTAN MEDOXOMIL. [Suspect]
     Active Substance: OLMESARTAN MEDOXOMIL
     Indication: HYPERTENSION
     Route: 065
  2. PREDNISOLONE. [Interacting]
     Active Substance: PREDNISOLONE
     Indication: CHOROIDAL DETACHMENT
     Route: 061
  3. ATROPINE. [Interacting]
     Active Substance: ATROPINE
     Indication: CHOROIDAL DETACHMENT
     Route: 061
  4. TIMOLOL. [Interacting]
     Active Substance: TIMOLOL
     Indication: CHOROIDAL DETACHMENT
     Route: 061

REACTIONS (1)
  - Choroidal effusion [Recovered/Resolved]
